APPROVED DRUG PRODUCT: DOXEPIN HYDROCHLORIDE
Active Ingredient: DOXEPIN HYDROCHLORIDE
Strength: EQ 10MG BASE
Dosage Form/Route: CAPSULE;ORAL
Application: A210675 | Product #001 | TE Code: AB
Applicant: EPIC PHARMA LLC
Approved: Oct 16, 2020 | RLD: No | RS: No | Type: RX